FAERS Safety Report 4544734-7 (Version None)
Quarter: 2004Q4

REPORT INFORMATION
  Report Type: 
  Country: None (occurrence: None)
  Receive Date: 20041230
  Receipt Date: 20041217
  Transmission Date: 20050328
  Serious: Yes (Other)
  Sender: FDA-Public Use
  Company Number: 2004115459

PATIENT
  Sex: Male

DRUGS (1)
  1. CELEBREX [Suspect]
     Indication: ILL-DEFINED DISORDER
     Dates: start: 19750101

REACTIONS (6)
  - AORTIC ANEURYSM [None]
  - ARTHRALGIA [None]
  - CARDIAC OPERATION [None]
  - MEMORY IMPAIRMENT [None]
  - PNEUMONECTOMY [None]
  - TREATMENT NONCOMPLIANCE [None]
